FAERS Safety Report 11180827 (Version 1)
Quarter: 2015Q2

REPORT INFORMATION
  Report Type: Spontaneous
  Country: US (occurrence: US)
  Receive Date: 20150611
  Receipt Date: 20150611
  Transmission Date: 20150821
  Serious: Yes (Other)
  Sender: FDA-Public Use
  Company Number: US-ACTAVIS-2015-11603

PATIENT
  Sex: Female
  Weight: 100 kg

DRUGS (1)
  1. TAMOXIFEN CITRATE (ACTAVIS LABORATORIES FL) [Suspect]
     Active Substance: TAMOXIFEN CITRATE
     Dosage: UNKNOWN
     Route: 065

REACTIONS (1)
  - Ovarian cancer metastatic [Unknown]
